FAERS Safety Report 5293553-5 (Version None)
Quarter: 2007Q2

REPORT INFORMATION
  Report Type: 
  Country: None (occurrence: None)
  Receive Date: 20070411
  Receipt Date: 20070328
  Transmission Date: 20071010
  Serious: Yes (Hospitalization, Other)
  Sender: FDA-Public Use
  Company Number: PHBS2007JP04155

PATIENT
  Age: 50 Year
  Sex: Male
  Weight: 65 kg

DRUGS (9)
  1. LUDIOMIL [Suspect]
     Indication: DEPRESSION
     Dosage: 25 MG, QD
     Route: 048
     Dates: start: 20051217, end: 20061124
  2. LUDIOMIL [Suspect]
     Dosage: 50 MG, QD
     Route: 048
     Dates: start: 20061125, end: 20070226
  3. LUDIOMIL [Suspect]
     Dosage: 2500 MG, ONCE/SINGLE
     Route: 048
     Dates: start: 20070227, end: 20070227
  4. LEXOTAN [Suspect]
     Indication: DEPRESSION
     Dosage: 5 MG/DAY
     Route: 048
     Dates: start: 20051217, end: 20070226
  5. LEXOTAN [Suspect]
     Dosage: 140 MG, ONCE/SINGLE
     Route: 048
     Dates: start: 20070227, end: 20070227
  6. NITRAZEPAM [Suspect]
     Indication: INSOMNIA
     Dosage: 10 MG/DAY
     Route: 048
     Dates: start: 20051217, end: 20070226
  7. NITRAZEPAM [Suspect]
     Dosage: 580 MG, ONCE/SINGLE
     Route: 048
     Dates: start: 20070227, end: 20070227
  8. ROHYPNOL [Suspect]
     Indication: INSOMNIA
     Dosage: 2 MG/DAY
     Route: 048
     Dates: start: 20051217, end: 20070226
  9. ROHYPNOL [Suspect]
     Dosage: 20 MG, ONCE/SINGLE
     Route: 048
     Dates: start: 20070227, end: 20070227

REACTIONS (9)
  - ALANINE AMINOTRANSFERASE INCREASED [None]
  - ASPARTATE AMINOTRANSFERASE INCREASED [None]
  - BLOOD CREATINE PHOSPHOKINASE INCREASED [None]
  - DEPRESSED LEVEL OF CONSCIOUSNESS [None]
  - DRUG TOXICITY [None]
  - HEPATIC FUNCTION ABNORMAL [None]
  - INTENTIONAL OVERDOSE [None]
  - MUSCLE DISORDER [None]
  - SUICIDE ATTEMPT [None]
